FAERS Safety Report 19720251 (Version 2)
Quarter: 2021Q3

REPORT INFORMATION
  Report Type: Spontaneous
  Country: IS (occurrence: IS)
  Receive Date: 20210819
  Receipt Date: 20210903
  Transmission Date: 20211014
  Serious: Yes (Hospitalization)
  Sender: FDA-Public Use
  Company Number: IS-TEVA-2021-IS-1942174

PATIENT
  Age: 58 Year
  Sex: Male

DRUGS (10)
  1. FLUMAZENIL. [Suspect]
     Active Substance: FLUMAZENIL
     Indication: TOXICITY TO VARIOUS AGENTS
     Route: 065
  2. GLUCOSE [Suspect]
     Active Substance: DEXTROSE
     Indication: TOXICITY TO VARIOUS AGENTS
     Route: 042
  3. OLANZAPINE. [Suspect]
     Active Substance: OLANZAPINE
     Indication: BIPOLAR DISORDER
     Route: 065
  4. LEVODOPA [Suspect]
     Active Substance: LEVODOPA
     Indication: TREMOR
     Route: 065
  5. CHLORPROTHIXENE [Suspect]
     Active Substance: CHLORPROTHIXENE
     Indication: BIPOLAR DISORDER
     Route: 065
  6. NALOXONE [Suspect]
     Active Substance: NALOXONE
     Indication: TOXICITY TO VARIOUS AGENTS
     Route: 065
  7. CHLORDIAZEPOXIDE. [Concomitant]
     Active Substance: CHLORDIAZEPOXIDE
     Indication: ALCOHOL WITHDRAWAL SYNDROME
     Route: 065
  8. BENSERAZIDE [Suspect]
     Active Substance: BENSERAZIDE
     Indication: TREMOR
     Route: 065
  9. LITHIUM. [Suspect]
     Active Substance: LITHIUM
     Indication: BIPOLAR DISORDER
     Route: 065
  10. ZOPICLONE [Concomitant]
     Active Substance: ZOPICLONE
     Indication: SLEEP DISORDER
     Route: 065

REACTIONS (7)
  - Drug ineffective [Unknown]
  - Neuroleptic malignant syndrome [Recovered/Resolved]
  - Dehydration [Recovering/Resolving]
  - Toxicity to various agents [Recovered/Resolved]
  - Extrapyramidal disorder [Recovering/Resolving]
  - Renal disorder [Recovering/Resolving]
  - Tremor [Unknown]
